FAERS Safety Report 24600546 (Version 4)
Quarter: 2024Q4

REPORT INFORMATION
  Report Type: Spontaneous
  Country: US (occurrence: US)
  Receive Date: 20241110
  Receipt Date: 20241125
  Transmission Date: 20250115
  Serious: Yes (Hospitalization)
  Sender: ROCHE
  Company Number: US-ROCHE-10000125101

PATIENT
  Age: 65 Year
  Sex: Male

DRUGS (1)
  1. TNKASE [Suspect]
     Active Substance: TENECTEPLASE
     Indication: Ischaemic stroke
     Route: 065

REACTIONS (4)
  - Cerebral haemorrhage [Unknown]
  - Off label use [Unknown]
  - Muscular weakness [Unknown]
  - Muscular weakness [Unknown]
